FAERS Safety Report 4650737-4 (Version None)
Quarter: 2005Q2

REPORT INFORMATION
  Report Type: 
  Country: None (occurrence: None)
  Receive Date: 20050503
  Receipt Date: 20040826
  Transmission Date: 20051028
  Serious: Yes (Other)
  Sender: FDA-Public Use
  Company Number: US-2004-BP-07310BP

PATIENT

DRUGS (1)
  1. CATAPRES [Suspect]
     Route: 048

REACTIONS (1)
  - DRUG ABUSER [None]
